FAERS Safety Report 20113804 (Version 1)
Quarter: 2021Q4

REPORT INFORMATION
  Report Type: Report from Study
  Country: US (occurrence: US)
  Receive Date: 20211125
  Receipt Date: 20211125
  Transmission Date: 20220303
  Serious: Yes (Hospitalization, Other)
  Sender: FDA-Public Use
  Company Number: US-TAKEDA-US201929898

PATIENT
  Age: 24 Year
  Sex: Female

DRUGS (2)
  1. PRUCALOPRIDE [Suspect]
     Active Substance: PRUCALOPRIDE
     Indication: Impaired gastric emptying
     Dosage: 2 MILLIGRAM, QD
     Route: 065
  2. PRUCALOPRIDE [Suspect]
     Active Substance: PRUCALOPRIDE
     Dosage: 1 DOSAGE FORM, QD
     Route: 048

REACTIONS (2)
  - Cerebrovascular accident [Unknown]
  - Product storage error [Unknown]

NARRATIVE: CASE EVENT DATE: 20211109
